FAERS Safety Report 19070656 (Version 1)
Quarter: 2021Q1

REPORT INFORMATION
  Report Type: Spontaneous
  Country: DE (occurrence: DE)
  Receive Date: 20210330
  Receipt Date: 20210330
  Transmission Date: 20210420
  Serious: Yes (Hospitalization, Other)
  Sender: FDA-Public Use
  Company Number: DE-AUROBINDO-AUR-APL-2021-011545

PATIENT
  Age: 71 Year
  Sex: Female
  Weight: 70 kg

DRUGS (2)
  1. OXALIPLATIN 5 MG/ML CONCENTRATE FOR SOLUTION FOR INFUSION [Suspect]
     Active Substance: OXALIPLATIN
     Indication: NEOPLASM MALIGNANT
     Dosage: 233 MILLIGRAM
     Route: 042
     Dates: start: 20210223
  2. GEMCITABINE. [Suspect]
     Active Substance: GEMCITABINE
     Indication: NEOPLASM MALIGNANT
     Dosage: UNK
     Route: 065

REACTIONS (8)
  - Therapy change [Unknown]
  - Dysphagia [Recovering/Resolving]
  - Dyspnoea [Recovering/Resolving]
  - Oxygen saturation decreased [Recovering/Resolving]
  - Cyanosis [Recovering/Resolving]
  - Anaphylactic reaction [Unknown]
  - Stridor [Recovering/Resolving]
  - Paralysis [Recovering/Resolving]

NARRATIVE: CASE EVENT DATE: 20210223
